FAERS Safety Report 5984638-6 (Version None)
Quarter: 2008Q4

REPORT INFORMATION
  Report Type: 
  Country: None (occurrence: None)
  Receive Date: 20081208
  Receipt Date: 20081202
  Transmission Date: 20090506
  Serious: Yes (Death)
  Sender: FDA-Public Use
  Company Number: US-GENENTECH-272701

PATIENT

DRUGS (5)
  1. RITUXAN [Suspect]
     Indication: BURKITT'S LYMPHOMA
     Route: 042
  2. CYCLOPHOSPHAMIDE [Concomitant]
     Indication: BURKITT'S LYMPHOMA
  3. DOXORUBICIN HCL [Concomitant]
     Indication: BURKITT'S LYMPHOMA
  4. VINCRISTINE [Concomitant]
     Indication: BURKITT'S LYMPHOMA
  5. PREDNISONE TAB [Concomitant]
     Indication: BURKITT'S LYMPHOMA

REACTIONS (2)
  - INFECTION [None]
  - TUMOUR LYSIS SYNDROME [None]
